FAERS Safety Report 9197688 (Version 1)
Quarter: 2013Q1

REPORT INFORMATION
  Report Type: Spontaneous
  Country: US (occurrence: US)
  Receive Date: 20130328
  Receipt Date: 20130328
  Transmission Date: 20140127
  Serious: No
  Sender: FDA-Public Use
  Company Number: US-GALDERMA-US12416000

PATIENT
  Age: 60 Year
  Sex: Female

DRUGS (2)
  1. CLOBEX [Suspect]
     Route: 061
  2. CLOBEX [Suspect]
     Route: 061
     Dates: start: 201106

REACTIONS (4)
  - Vision blurred [Not Recovered/Not Resolved]
  - Alopecia [Not Recovered/Not Resolved]
  - Telangiectasia [Not Recovered/Not Resolved]
  - Spider vein [None]
